FAERS Safety Report 7201737-1 (Version None)
Quarter: 2010Q4

REPORT INFORMATION
  Report Type: 
  Country: None (occurrence: None)
  Receive Date: 20101229
  Receipt Date: 20101221
  Transmission Date: 20110411
  Serious: Yes (Hospitalization, Disabling)
  Sender: FDA-Public Use
  Company Number: FR-ROCHE-749691

PATIENT
  Sex: Female

DRUGS (6)
  1. CELLCEPT [Suspect]
     Indication: PROPHYLAXIS AGAINST TRANSPLANT REJECTION
     Route: 048
     Dates: start: 20040101
  2. ADVAGRAF [Suspect]
     Indication: PROPHYLAXIS AGAINST TRANSPLANT REJECTION
     Route: 048
     Dates: start: 20040101
  3. DELURSAN [Concomitant]
     Dates: start: 20040101
  4. LIPANTHYL [Concomitant]
     Route: 048
     Dates: start: 20040101
  5. LEXOMIL [Concomitant]
     Indication: ANXIETY
     Route: 048
     Dates: start: 20040101
  6. OMEPRAZOLE [Concomitant]
     Route: 048
     Dates: start: 20040101

REACTIONS (2)
  - AMYOTROPHY [None]
  - NEUROPATHY PERIPHERAL [None]
